FAERS Safety Report 15129310 (Version 1)
Quarter: 2018Q3

REPORT INFORMATION
  Report Type: Spontaneous
  Country: US (occurrence: US)
  Receive Date: 20180711
  Receipt Date: 20180711
  Transmission Date: 20181010
  Serious: No
  Sender: FDA-Public Use
  Company Number: US-GLAXOSMITHKLINE-US2018118621

PATIENT
  Age: 88 Year
  Sex: Female

DRUGS (2)
  1. BREO ELLIPTA [Suspect]
     Active Substance: FLUTICASONE FUROATE\VILANTEROL TRIFENATATE
     Indication: DYSPNOEA
  2. BREO ELLIPTA [Suspect]
     Active Substance: FLUTICASONE FUROATE\VILANTEROL TRIFENATATE
     Indication: PULMONARY HYPERTENSION
     Dosage: 1 PUFF(S), 1D
     Route: 055
     Dates: start: 201802

REACTIONS (12)
  - Waist circumference increased [Unknown]
  - Dysphonia [Not Recovered/Not Resolved]
  - Blood pressure decreased [Unknown]
  - Skin disorder [Unknown]
  - Peripheral swelling [Unknown]
  - Product use in unapproved indication [Unknown]
  - Breast enlargement [Unknown]
  - Limb discomfort [Unknown]
  - Ill-defined disorder [Unknown]
  - Weight increased [Unknown]
  - Skin tightness [Unknown]
  - Condition aggravated [Not Recovered/Not Resolved]

NARRATIVE: CASE EVENT DATE: 201803
